FAERS Safety Report 5664084-5 (Version None)
Quarter: 2008Q1

REPORT INFORMATION
  Report Type: 
  Country: None (occurrence: None)
  Receive Date: 20080314
  Receipt Date: 20080305
  Transmission Date: 20080703
  Serious: No
  Sender: FDA-Public Use
  Company Number: DE-BAXTER-2008BH002095

PATIENT
  Age: 73 Year
  Sex: Female

DRUGS (1)
  1. GAMMAGARD LIQUID [Suspect]
     Indication: MUSCLE DISORDER
     Route: 042
     Dates: start: 20080128, end: 20080128

REACTIONS (1)
  - HYPERSENSITIVITY [None]
